FAERS Safety Report 9449992 (Version 4)
Quarter: 2013Q4

REPORT INFORMATION
  Report Type: Report from Study
  Country: FR (occurrence: FR)
  Receive Date: 20130809
  Receipt Date: 20131031
  Transmission Date: 20140711
  Serious: Yes (Life-Threatening, Hospitalization)
  Sender: FDA-Public Use
  Company Number: FR-UCBSA-088570

PATIENT
  Age: 60 Year
  Sex: Female
  Weight: 60 kg

DRUGS (8)
  1. CIMZIA [Suspect]
     Indication: RHEUMATOID ARTHRITIS
     Route: 058
     Dates: start: 20130516, end: 20130627
  2. CELEBREX [Suspect]
     Indication: RHEUMATOID ARTHRITIS
     Dates: start: 2010
  3. METOJECT [Suspect]
     Indication: RHEUMATOID ARTHRITIS
     Dosage: DOSE PER INTAKE:15 MG WEEKLY
     Dates: start: 2006, end: 20130707
  4. CORTANCYL [Suspect]
     Indication: RHEUMATOID ARTHRITIS
  5. INEXIUM [Suspect]
  6. AMOXICILLIN [Suspect]
     Dosage: DAILY DOSE: 2 GM
     Dates: start: 20130705, end: 20130708
  7. CORTANCYL [Concomitant]
     Indication: RHEUMATOID ARTHRITIS
     Dosage: 5-15MG/DAY
     Dates: start: 200306
  8. METHOTREXATE [Concomitant]
     Indication: RHEUMATOID ARTHRITIS
     Dosage: 15MG/WEEK
     Route: 058
     Dates: start: 200606

REACTIONS (2)
  - Agranulocytosis [Recovered/Resolved]
  - Headache [Recovered/Resolved]
